FAERS Safety Report 23494966 (Version 1)
Quarter: 2024Q1

REPORT INFORMATION
  Report Type: Spontaneous
  Country: JP (occurrence: JP)
  Receive Date: 20240207
  Receipt Date: 20240207
  Transmission Date: 20240409
  Serious: Yes (Death)
  Sender: FDA-Public Use
  Company Number: JP-BIOCRYST PHARMACEUTICALS, INC.-2024BCR00119

PATIENT

DRUGS (2)
  1. RAPIACTA [Suspect]
     Active Substance: PERAMIVIR
     Dosage: 50 MG, ONCE
     Route: 042
  2. VEKLURY [Concomitant]
     Active Substance: REMDESIVIR
     Dosage: UNK

REACTIONS (1)
  - Cardiac disorder [Fatal]
